FAERS Safety Report 20664346 (Version 1)
Quarter: 2022Q2

REPORT INFORMATION
  Report Type: Spontaneous
  Country: US (occurrence: None)
  Receive Date: 20220401
  Receipt Date: 20220401
  Transmission Date: 20220720
  Serious: No
  Sender: FDA-Public Use
  Company Number: 2022A106816

PATIENT
  Age: 54 Year
  Sex: Male

DRUGS (1)
  1. FASENRA [Suspect]
     Active Substance: BENRALIZUMAB
     Dosage: UNKNOWN POSOLOGY
     Route: 058

REACTIONS (2)
  - Pain in extremity [Not Recovered/Not Resolved]
  - Dyspnoea [Unknown]
